FAERS Safety Report 4344746-2 (Version None)
Quarter: 2004Q2

REPORT INFORMATION
  Report Type: 
  Country: None (occurrence: None)
  Receive Date: 20040420
  Receipt Date: 20040407
  Transmission Date: 20050107
  Serious: Yes (Hospitalization, Other)
  Sender: FDA-Public Use
  Company Number: NSADSS2002030629

PATIENT
  Age: 29 Year
  Sex: Female

DRUGS (12)
  1. REMICADE [Suspect]
     Indication: RHEUMATOID ARTHRITIS
     Dosage: 120 MG, 1 IN 1 AS NECESSARY, INTRAVENOUS DRIP
     Route: 041
     Dates: start: 20010411, end: 20010411
  2. REMICADE [Suspect]
     Indication: RHEUMATOID ARTHRITIS
     Dosage: 120 MG, 1 IN 1 AS NECESSARY, INTRAVENOUS DRIP
     Route: 041
     Dates: start: 20020615, end: 20020615
  3. METHOTREXATE [Concomitant]
  4. METHYLPREDNISOLONE [Concomitant]
  5. FOLIC ACID [Concomitant]
  6. CALCIUM WITH VITAMIN D (CALCIUM WITH VIMTAMIN D) [Concomitant]
  7. ACETAMINOPHEN [Concomitant]
  8. KETOPROFEN [Concomitant]
  9. THIOCOLCHICOSIDE (THIOCOLCHICOSIDE) [Concomitant]
  10. CORTISONE (CORTISONE) [Concomitant]
  11. ANTIISTAMINES (ANTIHISTAMINES) [Concomitant]
  12. RABEPRAZOLE SODIUM [Concomitant]

REACTIONS (11)
  - ABDOMINAL PAIN LOWER [None]
  - ASTHENIA [None]
  - C-REACTIVE PROTEIN INCREASED [None]
  - DRUG RESISTANCE [None]
  - DYSURIA [None]
  - MALAISE [None]
  - MUSCLE CRAMP [None]
  - POLYARTHRITIS [None]
  - PRURITUS [None]
  - PYREXIA [None]
  - SACRAL PAIN [None]
